FAERS Safety Report 10752384 (Version 4)
Quarter: 2016Q4

REPORT INFORMATION
  Report Type: Report from Study
  Country: CA (occurrence: CA)
  Receive Date: 20150130
  Receipt Date: 20161227
  Transmission Date: 20170206
  Serious: Yes (Hospitalization, Other)
  Sender: FDA-Public Use
  Company Number: CA-JNJFOC-20150110854

PATIENT
  Age: 65 Year
  Sex: Male
  Weight: 76.4 kg

DRUGS (5)
  1. IMBRUVICA [Suspect]
     Active Substance: IBRUTINIB
     Indication: CHRONIC LYMPHOCYTIC LEUKAEMIA
     Route: 048
     Dates: start: 20150622, end: 201601
  2. IMBRUVICA [Suspect]
     Active Substance: IBRUTINIB
     Indication: CHRONIC LYMPHOCYTIC LEUKAEMIA
     Route: 048
     Dates: start: 20160815, end: 20161124
  3. IMBRUVICA [Suspect]
     Active Substance: IBRUTINIB
     Indication: CHRONIC LYMPHOCYTIC LEUKAEMIA
     Route: 048
     Dates: end: 201605
  4. IMBRUVICA [Suspect]
     Active Substance: IBRUTINIB
     Indication: CHRONIC LYMPHOCYTIC LEUKAEMIA
     Route: 048
     Dates: start: 20150105
  5. IMBRUVICA [Suspect]
     Active Substance: IBRUTINIB
     Indication: CHRONIC LYMPHOCYTIC LEUKAEMIA
     Route: 048
     Dates: start: 201612

REACTIONS (19)
  - Post procedural haemorrhage [Recovered/Resolved]
  - Fall [Unknown]
  - Peripheral swelling [Not Recovered/Not Resolved]
  - Gingival bleeding [Not Recovered/Not Resolved]
  - Inflammation [Not Recovered/Not Resolved]
  - Contusion [Recovered/Resolved]
  - Platelet count decreased [Recovering/Resolving]
  - Neutrophil count decreased [Recovering/Resolving]
  - Drug dose omission [Not Recovered/Not Resolved]
  - Cellulitis [Recovered/Resolved]
  - Decreased appetite [Not Recovered/Not Resolved]
  - Limb mass [Recovering/Resolving]
  - Escherichia infection [Recovered/Resolved]
  - Peripheral swelling [Not Recovered/Not Resolved]
  - Fatigue [Not Recovered/Not Resolved]
  - Back injury [Unknown]
  - Sepsis [Recovered/Resolved]
  - Arthralgia [Recovering/Resolving]
  - Contusion [Not Recovered/Not Resolved]

NARRATIVE: CASE EVENT DATE: 201501
